FAERS Safety Report 24404864 (Version 1)
Quarter: 2024Q4

REPORT INFORMATION
  Report Type: Spontaneous
  Country: US (occurrence: None)
  Receive Date: 20241004
  Receipt Date: 20241004
  Transmission Date: 20250114
  Serious: No
  Sender: Public
  Company Number: None

PATIENT
  Age: 30 Year
  Sex: Female
  Weight: 68 kg

DRUGS (2)
  1. SEMAGLUTIDE [Suspect]
     Active Substance: SEMAGLUTIDE
     Indication: Diabetes mellitus
  2. DIVALPROEX SODIUM [Suspect]
     Active Substance: DIVALPROEX SODIUM
     Dosage: 500.00 MG AT BEDTIME ORAL
     Route: 048
     Dates: end: 20240523

REACTIONS (6)
  - Pancreatitis acute [None]
  - Disease recurrence [None]
  - Hypertriglyceridaemia [None]
  - Headache [None]
  - Mood swings [None]
  - Therapy interrupted [None]

NARRATIVE: CASE EVENT DATE: 20240523
